FAERS Safety Report 20031354 (Version 1)
Quarter: 2021Q4

REPORT INFORMATION
  Report Type: Spontaneous
  Country: US (occurrence: US)
  Receive Date: 20211103
  Receipt Date: 20211103
  Transmission Date: 20220303
  Serious: Yes (Life-Threatening, Hospitalization, Other)
  Sender: FDA-Public Use
  Company Number: US-LUPIN PHARMACEUTICALS INC.-2021-21283

PATIENT
  Age: 32 Year
  Sex: Male

DRUGS (4)
  1. AMLODIPINE [Suspect]
     Active Substance: AMLODIPINE BESYLATE
     Indication: Product used for unknown indication
     Dosage: 300 MILLIGRAM
     Route: 048
  2. BUPROPION [Suspect]
     Active Substance: BUPROPION
     Indication: Product used for unknown indication
     Dosage: 1500 MILLIGRAM
     Route: 048
  3. ZOLPIDEM [Suspect]
     Active Substance: ZOLPIDEM TARTRATE
     Indication: Product used for unknown indication
     Dosage: UNK
     Route: 048
  4. ALPRAZOLAM [Suspect]
     Active Substance: ALPRAZOLAM
     Indication: Product used for unknown indication
     Dosage: 3 MILLIGRAM
     Route: 048

REACTIONS (10)
  - Hypotension [Recovering/Resolving]
  - Bradycardia [Recovering/Resolving]
  - Dysarthria [Recovering/Resolving]
  - Cardiopulmonary failure [Recovering/Resolving]
  - Distributive shock [Recovering/Resolving]
  - Metabolic acidosis [Recovering/Resolving]
  - Lethargy [Recovering/Resolving]
  - Intentional overdose [Unknown]
  - Toxicity to various agents [Recovering/Resolving]
  - Suicide attempt [Unknown]
